FAERS Safety Report 6822646-3 (Version None)
Quarter: 2010Q3

REPORT INFORMATION
  Report Type: 
  Country: None (occurrence: None)
  Receive Date: 20100706
  Receipt Date: 20100706
  Transmission Date: 20110219
  Serious: No
  Sender: FDA-Public Use
  Company Number: None

PATIENT
  Age: 62 Year
  Sex: Male
  Weight: 113.3993 kg

DRUGS (1)
  1. ENABLEX [Suspect]
     Dosage: ONE DAILY
     Dates: start: 20091223, end: 20100127

REACTIONS (2)
  - BLOOD GLUCOSE INCREASED [None]
  - POLYURIA [None]
